FAERS Safety Report 8083727-2 (Version None)
Quarter: 2012Q1

REPORT INFORMATION
  Report Type: 
  Country: None (occurrence: None)
  Receive Date: 20120127
  Receipt Date: 20110124
  Transmission Date: 20120608
  Serious: No
  Sender: FDA-Public Use
  Company Number: US-ABBOTT-11P-163-0700122-00

PATIENT
  Age: 73 Year
  Sex: Male

DRUGS (6)
  1. HYZAAR [Concomitant]
     Indication: HYPERTENSION
     Dosage: 100/25 MG DAILY
  2. HYTRIN [Concomitant]
     Indication: PROSTATIC DISORDER
  3. HUMIRA [Suspect]
     Indication: PSORIASIS
     Dosage: ONE INJECTION EVERY TWO WEEKS
     Dates: start: 20101101
  4. NORVASC [Concomitant]
     Indication: HYPERTENSION
  5. VYTORIN [Concomitant]
     Indication: BLOOD CHOLESTEROL
  6. PROSCAR [Concomitant]
     Indication: PROSTATIC DISORDER

REACTIONS (2)
  - INJECTION SITE MASS [None]
  - INJECTION SITE HAEMORRHAGE [None]
